FAERS Safety Report 9321703 (Version 1)
Quarter: 2013Q2

REPORT INFORMATION
  Report Type: Report from Study
  Country: CA (occurrence: CA)
  Receive Date: 20130531
  Receipt Date: 20130531
  Transmission Date: 20140414
  Serious: Yes (Other)
  Sender: FDA-Public Use
  Company Number: CA-JNJFOC-20130520147

PATIENT
  Age: 20 Year
  Sex: Male
  Weight: 49.8 kg

DRUGS (1)
  1. REMICADE [Suspect]
     Indication: CROHN^S DISEASE
     Route: 042
     Dates: start: 2010

REACTIONS (3)
  - Weight decreased [Not Recovered/Not Resolved]
  - Haematochezia [Not Recovered/Not Resolved]
  - Abdominal pain [Not Recovered/Not Resolved]
